FAERS Safety Report 5394928-6 (Version None)
Quarter: 2007Q3

REPORT INFORMATION
  Report Type: 
  Country: None (occurrence: None)
  Receive Date: 20070720
  Receipt Date: 20070711
  Transmission Date: 20080115
  Serious: Yes (Other)
  Sender: FDA-Public Use
  Company Number: 2007326287

PATIENT
  Age: 53 Year
  Sex: Male
  Weight: 100 kg

DRUGS (1)
  1. PSEUDOEPHEDRINE HCL [Suspect]
     Dosage: 120MG, ORAL
     Route: 048
     Dates: start: 20070524, end: 20070526

REACTIONS (1)
  - URINARY RETENTION [None]
